FAERS Safety Report 6548253-8 (Version None)
Quarter: 2010Q1

REPORT INFORMATION
  Report Type: 
  Country: None (occurrence: None)
  Receive Date: 20100124
  Receipt Date: 20090331
  Transmission Date: 20100710
  Serious: No
  Sender: FDA-Public Use
  Company Number: US-ALLERGAN-0904413US

PATIENT
  Age: 62 Year
  Sex: Female

DRUGS (3)
  1. RESTASIS [Suspect]
     Indication: DRY EYE
     Route: 047
  2. ZOCOR [Concomitant]
  3. FOSAMAX [Concomitant]

REACTIONS (1)
  - DRUG INEFFECTIVE [None]
